FAERS Safety Report 9316128 (Version 2)
Quarter: 2017Q1

REPORT INFORMATION
  Report Type: Report from Study
  Country: JP (occurrence: JP)
  Receive Date: 20130530
  Receipt Date: 20170209
  Transmission Date: 20170429
  Serious: Yes (Hospitalization)
  Sender: FDA-Public Use
  Company Number: JP-ROCHE-1228025

PATIENT
  Age: 54 Year
  Sex: Male
  Weight: 54.25 kg

DRUGS (49)
  1. TIENAM [Suspect]
     Active Substance: CILASTATIN SODIUM\IMIPENEM
     Route: 041
     Dates: start: 20091029, end: 20091102
  2. POTASSIUM CHLORIDE. [Concomitant]
     Active Substance: POTASSIUM CHLORIDE
     Dosage: 1200 MG, QD
     Route: 048
     Dates: start: 20090819
  3. PREDONINE [Concomitant]
     Active Substance: PREDNISOLONE
     Dosage: 5 MG, QD
     Route: 048
     Dates: start: 20091124
  4. CLARITH [Concomitant]
     Active Substance: CLARITHROMYCIN
     Indication: ASTHMA
     Dosage: 200 MG, QD
     Route: 048
     Dates: start: 20091203
  5. LOXONIN [Suspect]
     Active Substance: LOXOPROFEN SODIUM
     Route: 048
     Dates: start: 20091102, end: 20091102
  6. POTASSIUM CHLORIDE. [Concomitant]
     Active Substance: POTASSIUM CHLORIDE
     Indication: PRODUCT USED FOR UNKNOWN INDICATION
     Dosage: 1800 MG, QD
     Route: 048
     Dates: start: 20090624, end: 20090818
  7. MUCODYNE [Concomitant]
     Active Substance: CARBOCYSTEINE
     Indication: ASTHMA
     Dosage: 1500 MG, QD
     Route: 048
  8. HALCION [Concomitant]
     Active Substance: TRIAZOLAM
     Indication: PRODUCT USED FOR UNKNOWN INDICATION
     Dosage: 0.5 MG, QD
     Route: 048
  9. MUCOFILIN [Concomitant]
     Indication: ASTHMA
     Dosage: 704.8 MG, QD
     Route: 055
  10. BECLOMETASONE DIPROPIONATE [Concomitant]
     Active Substance: BECLOMETHASONE DIPROPIONATE
  11. QVAR [Concomitant]
     Active Substance: BECLOMETHASONE DIPROPIONATE
     Indication: ASTHMA
     Dosage: 200 UG, BID
     Route: 055
     Dates: end: 20090615
  12. ALINAMIN F [Concomitant]
     Active Substance: FURSULTIAMINE HYDROCHLORIDE
     Indication: ASTHMA
     Dosage: 75 MG, QD
     Route: 048
  13. MUCOSOLVAN [Concomitant]
     Active Substance: AMBROXOL HYDROCHLORIDE
     Indication: ASTHMA
     Dosage: 45 MG, QD
     Route: 048
  14. GASTER [Concomitant]
     Active Substance: FAMOTIDINE
     Indication: PROPHYLAXIS
     Dosage: 20 MG, QD
     Route: 048
     Dates: start: 20091029, end: 20091103
  15. OMALIZUMAB [Suspect]
     Active Substance: OMALIZUMAB
     Route: 058
     Dates: start: 20090928
  16. TIENAM [Suspect]
     Active Substance: CILASTATIN SODIUM\IMIPENEM
     Route: 041
     Dates: start: 20090917, end: 20090923
  17. THEOLONG [Concomitant]
     Active Substance: THEOPHYLLINE ANHYDROUS
     Indication: ASTHMA
     Dosage: 200 MG, BID
     Route: 048
  18. PREDONINE [Concomitant]
     Active Substance: PREDNISOLONE
     Dosage: UNK, BID
     Route: 048
     Dates: start: 20090907, end: 20090907
  19. ROHYPNOL [Concomitant]
     Active Substance: FLUNITRAZEPAM
     Indication: PRODUCT USED FOR UNKNOWN INDICATION
     Dosage: 1 MG, QD
     Route: 048
     Dates: start: 20090929, end: 20091018
  20. INFLUENZA VACCINE [Concomitant]
     Active Substance: INFLUENZA VIRUS VACCINE
     Indication: PROPHYLAXIS
     Dosage: 0.5 ML, UNK
     Route: 030
     Dates: start: 20091118, end: 20091118
  21. LOXONIN [Suspect]
     Active Substance: LOXOPROFEN SODIUM
     Indication: PRODUCT USED FOR UNKNOWN INDICATION
     Route: 048
     Dates: start: 20090721, end: 20090721
  22. HOKUNALIN [Concomitant]
     Active Substance: TULOBUTEROL
     Indication: ASTHMA
     Dosage: 2 MG, QD
     Route: 062
     Dates: start: 20090413, end: 20090413
  23. PREDONINE [Concomitant]
     Active Substance: PREDNISOLONE
     Dosage: 5 MG, BID
     Route: 048
     Dates: start: 20090714, end: 20090811
  24. MAGNESIUM OXIDE. [Concomitant]
     Active Substance: MAGNESIUM OXIDE
     Indication: PRODUCT USED FOR UNKNOWN INDICATION
     Dosage: 1.5 MG, QD
     Route: 048
  25. SPIRIVA [Concomitant]
     Active Substance: TIOTROPIUM BROMIDE MONOHYDRATE
     Indication: ASTHMA
     Dosage: 18 UG, QD
     Route: 055
  26. ACETYLCYSTEINE. [Concomitant]
     Active Substance: ACETYLCYSTEINE
  27. LOXONIN [Suspect]
     Active Substance: LOXOPROFEN SODIUM
     Route: 048
     Dates: start: 20091012, end: 20091013
  28. ZOSYN [Suspect]
     Active Substance: PIPERACILLIN SODIUM\TAZOBACTAM SODIUM
     Indication: PRODUCT USED FOR UNKNOWN INDICATION
     Route: 041
     Dates: start: 20091102, end: 20091102
  29. QVAR [Concomitant]
     Active Substance: BECLOMETHASONE DIPROPIONATE
     Dosage: 200 UG, UNK
     Route: 055
     Dates: start: 20090616
  30. SEREVENT DISKUS [Concomitant]
     Active Substance: SALMETEROL XINAFOATE
     Indication: ASTHMA
     Dosage: 50 UG, BID
     Route: 055
     Dates: start: 20090414
  31. ONON [Concomitant]
     Active Substance: PRANLUKAST
     Indication: ASTHMA
     Dosage: 225 MG, BID
     Route: 048
  32. PREDONINE [Concomitant]
     Active Substance: PREDNISOLONE
     Dosage: 5 MG, QD
     Route: 048
     Dates: start: 20090812, end: 20090831
  33. PREDONINE [Concomitant]
     Active Substance: PREDNISOLONE
     Dosage: 5 MG, QOD
     Route: 048
     Dates: start: 20090901, end: 20090906
  34. PREDONINE [Concomitant]
     Active Substance: PREDNISOLONE
     Dosage: 5 MG, BID
     Route: 048
     Dates: start: 20091006, end: 20091123
  35. HERBESSER [Concomitant]
     Active Substance: DILTIAZEM HYDROCHLORIDE
     Indication: PRODUCT USED FOR UNKNOWN INDICATION
     Dosage: 200 MG, QD
     Route: 048
  36. DASEN [Concomitant]
     Active Substance: SERRAPEPTASE
     Indication: ASTHMA
     Dosage: 30 MG, QD
     Route: 048
     Dates: start: 20090831, end: 20090831
  37. OMALIZUMAB [Suspect]
     Active Substance: OMALIZUMAB
     Route: 058
     Dates: start: 20091106
  38. TIENAM [Suspect]
     Active Substance: CILASTATIN SODIUM\IMIPENEM
     Indication: PRODUCT USED FOR UNKNOWN INDICATION
     Route: 041
     Dates: start: 20090721, end: 20090729
  39. TIENAM [Suspect]
     Active Substance: CILASTATIN SODIUM\IMIPENEM
     Route: 041
     Dates: start: 20091012, end: 20091021
  40. POTASSIUM CHLORIDE. [Concomitant]
     Active Substance: POTASSIUM CHLORIDE
     Dosage: 600 MG, QD
     Route: 048
     Dates: start: 20090901, end: 20090928
  41. POTASSIUM CHLORIDE. [Concomitant]
     Active Substance: POTASSIUM CHLORIDE
     Dosage: 600 MG, QD
     Route: 048
     Dates: start: 20091110, end: 20091207
  42. PREDONINE [Concomitant]
     Active Substance: PREDNISOLONE
     Indication: ASTHMA
     Dosage: UNK UNK, BID
     Route: 048
     Dates: start: 20090620, end: 20090713
  43. PREDONINE [Concomitant]
     Active Substance: PREDNISOLONE
     Dosage: UNK, BID
     Route: 048
     Dates: start: 20090908, end: 20091005
  44. ZITHROMAX [Concomitant]
     Active Substance: AZITHROMYCIN DIHYDRATE
     Indication: ASTHMA
     Dosage: UNK UNK, QW3
     Route: 048
     Dates: start: 20091102, end: 20091102
  45. GASTER [Concomitant]
     Active Substance: FAMOTIDINE
     Dosage: 40 MG, QD
     Route: 048
     Dates: start: 20091104
  46. OMALIZUMAB [Suspect]
     Active Substance: OMALIZUMAB
     Indication: ASTHMA
     Route: 058
     Dates: start: 20090629, end: 20091225
  47. OMALIZUMAB [Suspect]
     Active Substance: OMALIZUMAB
     Route: 058
     Dates: start: 20091207, end: 20091225
  48. POTASSIUM CHLORIDE. [Concomitant]
     Active Substance: POTASSIUM CHLORIDE
     Dosage: 1200 MG, QD
     Route: 048
     Dates: start: 20090929, end: 20091109
  49. ZYLORIC [Concomitant]
     Active Substance: ALLOPURINOL
     Indication: PRODUCT USED FOR UNKNOWN INDICATION
     Dosage: 200 MG, QD
     Route: 048

REACTIONS (5)
  - Infection [Recovered/Resolved]
  - Diffuse panbronchiolitis [Recovered/Resolved]
  - White blood cell count increased [Unknown]
  - Pyrexia [Unknown]
  - Sputum increased [Recovered/Resolved]

NARRATIVE: CASE EVENT DATE: 20090629
